FAERS Safety Report 4699849-X (Version None)
Quarter: 2005Q2

REPORT INFORMATION
  Report Type: 
  Country: None (occurrence: None)
  Receive Date: 20050624
  Receipt Date: 20050614
  Transmission Date: 20051028
  Serious: Yes (Hospitalization)
  Sender: FDA-Public Use
  Company Number: JP-MERCK-0506USA02428

PATIENT
  Age: 60 Year
  Sex: Female
  Weight: 55 kg

DRUGS (4)
  1. COZAAR [Suspect]
     Indication: HYPERTENSION
     Route: 048
     Dates: start: 20030601, end: 20040301
  2. COZAAR [Suspect]
     Route: 048
     Dates: start: 20040301, end: 20050604
  3. NICARDIPINE HCL [Concomitant]
     Indication: HYPERTENSION
     Route: 048
     Dates: start: 19960101
  4. PREDONINE [Concomitant]
     Indication: FIBROMYALGIA
     Route: 048
     Dates: start: 19960101

REACTIONS (3)
  - HAEMORRHAGE SUBCUTANEOUS [None]
  - PLATELET COUNT DECREASED [None]
  - THROMBOCYTOPENIA [None]
